FAERS Safety Report 17562227 (Version 1)
Quarter: 2020Q1

REPORT INFORMATION
  Report Type: Spontaneous
  Country: US (occurrence: US)
  Receive Date: 20200319
  Receipt Date: 20200319
  Transmission Date: 20200409
  Serious: No
  Sender: FDA-Public Use
  Company Number: US-IBSA PHARMA-TIR-2019-0969

PATIENT
  Sex: Female

DRUGS (3)
  1. ATENOLOL. [Suspect]
     Active Substance: ATENOLOL
     Indication: BLOOD PRESSURE MEASUREMENT
  2. TIROSINT [Suspect]
     Active Substance: LEVOTHYROXINE SODIUM
     Indication: THYROIDECTOMY
     Dosage: 88MCG AND 75MCG ALTERNATING DAYS
     Dates: start: 2017
  3. TIROSINT [Suspect]
     Active Substance: LEVOTHYROXINE SODIUM
     Indication: THYROIDECTOMY
     Dosage: 88MCG AND 75MCG ALTERNATING DAYS
     Route: 048
     Dates: start: 2017

REACTIONS (7)
  - Confusional state [Unknown]
  - Bedridden [Unknown]
  - Fatigue [Unknown]
  - Dizziness [Unknown]
  - Blood thyroid stimulating hormone increased [Unknown]
  - Weight increased [Unknown]
  - Arrhythmia [Unknown]

NARRATIVE: CASE EVENT DATE: 2019
